FAERS Safety Report 24668798 (Version 1)
Quarter: 2024Q4

REPORT INFORMATION
  Report Type: Spontaneous
  Country: US (occurrence: US)
  Receive Date: 20241127
  Receipt Date: 20241127
  Transmission Date: 20250115
  Serious: Yes (Other)
  Sender: RANBAXY
  Company Number: US-SUN PHARMACEUTICAL INDUSTRIES LTD-2024R1-481009

PATIENT
  Age: 60 Year
  Sex: Female
  Weight: 167 kg

DRUGS (1)
  1. BACTRIM [Suspect]
     Active Substance: SULFAMETHOXAZOLE\TRIMETHOPRIM
     Indication: Cardiac failure
     Dosage: UNK
     Route: 065

REACTIONS (1)
  - Condition aggravated [Unknown]
